FAERS Safety Report 6411695-5 (Version None)
Quarter: 2009Q4

REPORT INFORMATION
  Report Type: 
  Country: None (occurrence: None)
  Receive Date: 20091023
  Receipt Date: 20091012
  Transmission Date: 20100525
  Serious: Yes (Hospitalization)
  Sender: FDA-Public Use
  Company Number: PHHY2009AU41877

PATIENT
  Sex: Male

DRUGS (5)
  1. CLOZARIL [Suspect]
     Dosage: UNK
     Dates: start: 20051101
  2. CLOZARIL [Suspect]
     Dosage: 300 MG, UNK
     Dates: start: 20060208
  3. CLOZARIL [Suspect]
     Dosage: 12.5 MG
     Dates: start: 20090929
  4. CLOZARIL [Suspect]
     Dosage: UNK
     Dates: start: 20091013
  5. METFORMIN HCL [Concomitant]
     Dosage: 500 MG, BID
     Route: 048
     Dates: start: 20091007

REACTIONS (6)
  - ACCIDENTAL OVERDOSE [None]
  - CONFUSIONAL STATE [None]
  - HALLUCINATION, AUDITORY [None]
  - HEADACHE [None]
  - TREMOR [None]
  - VOMITING [None]
